FAERS Safety Report 5563126-5 (Version None)
Quarter: 2007Q4

REPORT INFORMATION
  Report Type: 
  Country: None (occurrence: None)
  Receive Date: 20071217
  Receipt Date: 20071211
  Transmission Date: 20080405
  Serious: Yes (Hospitalization, Disabling)
  Sender: FDA-Public Use
  Company Number: B0381764A

PATIENT
  Sex: Male

DRUGS (9)
  1. SEROXAT [Suspect]
     Indication: DEPRESSION
     Route: 048
     Dates: start: 19950101, end: 19980401
  2. EFFEXOR [Suspect]
     Indication: DEPRESSION
     Dosage: 37.5MG PER DAY
     Route: 048
     Dates: start: 19981001, end: 19981009
  3. NOZINAN [Suspect]
  4. ZOLOFT [Suspect]
     Indication: DEPRESSION
     Route: 048
     Dates: start: 19981101, end: 19981201
  5. MELLARIL [Suspect]
     Indication: INSOMNIA
     Route: 065
  6. IMOVANE [Suspect]
  7. NEFADAR [Suspect]
     Indication: DEPRESSION
     Dosage: 20MG PER DAY
     Route: 048
  8. ROHYPNOL [Concomitant]
     Route: 065
  9. VALLERGAN [Concomitant]
     Route: 065
     Dates: start: 19981110, end: 19981201

REACTIONS (32)
  - ABDOMINAL PAIN [None]
  - ANXIETY [None]
  - BALANCE DISORDER [None]
  - CARDIOVASCULAR DISORDER [None]
  - CHEST DISCOMFORT [None]
  - CHEST PAIN [None]
  - CHRONIC FATIGUE SYNDROME [None]
  - CONFUSIONAL STATE [None]
  - DECREASED APPETITE [None]
  - DEPRESSION [None]
  - DISABILITY [None]
  - DIZZINESS [None]
  - ERECTILE DYSFUNCTION [None]
  - FACIAL PALSY [None]
  - FATIGUE [None]
  - FEAR [None]
  - GASTROINTESTINAL DISORDER [None]
  - HEADACHE [None]
  - HEART RATE DECREASED [None]
  - HEART RATE INCREASED [None]
  - HYPOTENSION [None]
  - JOINT STIFFNESS [None]
  - MUSCLE SPASMS [None]
  - MUSCLE TWITCHING [None]
  - PARAESTHESIA [None]
  - PHOTOSENSITIVITY REACTION [None]
  - SENSORY DISTURBANCE [None]
  - SLEEP DISORDER [None]
  - SOCIAL PHOBIA [None]
  - SOMATISATION DISORDER [None]
  - TINNITUS [None]
  - WEIGHT DECREASED [None]
